FAERS Safety Report 13396628 (Version 1)
Quarter: 2017Q2

REPORT INFORMATION
  Report Type: Spontaneous
  Country: US (occurrence: US)
  Receive Date: 20170403
  Receipt Date: 20170403
  Transmission Date: 20170830
  Serious: Yes (Hospitalization)
  Sender: FDA-Public Use
  Company Number: None

PATIENT
  Age: 75 Year
  Sex: Female

DRUGS (6)
  1. ADCIRCA [Suspect]
     Active Substance: TADALAFIL
     Indication: TYPE IIA HYPERLIPIDAEMIA
  2. ADCIRCA [Suspect]
     Active Substance: TADALAFIL
     Indication: ESSENTIAL HYPERTENSION
  3. ADCIRCA [Suspect]
     Active Substance: TADALAFIL
     Indication: RHINITIS ALLERGIC
  4. ADCIRCA [Suspect]
     Active Substance: TADALAFIL
     Indication: THYROID DISORDER
  5. ADCIRCA [Suspect]
     Active Substance: TADALAFIL
     Indication: HYPOKALAEMIA
  6. ADCIRCA [Suspect]
     Active Substance: TADALAFIL
     Indication: HYPOTHYROIDISM

REACTIONS (1)
  - Cerebrovascular accident [None]

NARRATIVE: CASE EVENT DATE: 20170402
